FAERS Safety Report 12110814 (Version 2)
Quarter: 2016Q1

REPORT INFORMATION
  Report Type: Spontaneous
  Country: PT (occurrence: PT)
  Receive Date: 20160224
  Receipt Date: 20160301
  Transmission Date: 20160526
  Serious: Yes (Hospitalization)
  Sender: FDA-Public Use
  Company Number: PT-PFIZER INC-2016110036

PATIENT
  Age: 68 Year
  Sex: Female

DRUGS (19)
  1. SIMVASTATIN. [Interacting]
     Active Substance: SIMVASTATIN
     Dosage: 40 MG, DAILY
  2. ETORICOXIB [Suspect]
     Active Substance: ETORICOXIB
     Dosage: 90 MG, DAILY
  3. DEFLAZACORT [Suspect]
     Active Substance: DEFLAZACORT
     Dosage: 3 MG, DAILY
  4. CITICOLINE [Suspect]
     Active Substance: CITICOLINE
     Dosage: 600 MG, DAILY
  5. ACECLOFENAC [Suspect]
     Active Substance: ACECLOFENAC
     Dosage: 100 MG, DAILY
  6. CELECOXIB. [Suspect]
     Active Substance: CELECOXIB
     Dosage: 200 MG, DAILY
  7. CHLORDIAZEPOXIDE [Interacting]
     Active Substance: CHLORDIAZEPOXIDE
     Dosage: 5 MG, DAILY
  8. BETAHISTINE [Suspect]
     Active Substance: BETAHISTINE
     Dosage: 16 MG, DAILY
  9. OMEPRAZOLE. [Suspect]
     Active Substance: OMEPRAZOLE
     Dosage: 20 MG, DAILY
  10. TRAZODONE [Interacting]
     Active Substance: TRAZODONE HYDROCHLORIDE
     Dosage: 150 MG, DAILY
  11. ALFUZOSIN [Suspect]
     Active Substance: ALFUZOSIN
     Dosage: 5 MG, DAILY
  12. ALPRAZOLAM. [Interacting]
     Active Substance: ALPRAZOLAM
     Dosage: 1 MG, DAILY
     Route: 048
  13. PAROXETINE [Interacting]
     Active Substance: PAROXETINE\PAROXETINE HYDROCHLORIDE
     Dosage: 90 MG, DAILY
  14. CLIDINIUM BROMIDE [Suspect]
     Active Substance: CLIDINIUM BROMIDE
     Dosage: 2.5 MG, DAILY
  15. TRIHEXYPHENIDYL [Interacting]
     Active Substance: TRIHEXYPHENIDYL
     Dosage: 4 MG, DAILY
  16. PROPANOLOL [Suspect]
     Active Substance: PROPRANOLOL HYDROCHLORIDE
     Dosage: 40 MG, DAILY
  17. TRIMETAZIDINE [Suspect]
     Active Substance: TRIMETAZIDINE
     Dosage: 20 MG, DAILY
  18. OTILONIUM BROMIDE [Suspect]
     Active Substance: OTILONIUM BROMIDE
     Dosage: 40 MG, DAILY
  19. GLUCOSAMINE [Suspect]
     Active Substance: GLUCOSAMINE
     Dosage: 1500 MG, DAILY

REACTIONS (3)
  - Cognitive disorder [Recovered/Resolved]
  - Drug interaction [Recovered/Resolved]
  - Hyperreflexia [Unknown]
